FAERS Safety Report 10051436 (Version 2)
Quarter: 2014Q2

REPORT INFORMATION
  Report Type: Spontaneous
  Country: US (occurrence: US)
  Receive Date: 20140401
  Receipt Date: 20140516
  Transmission Date: 20141212
  Serious: No
  Sender: FDA-Public Use
  Company Number: US-PFIZER INC-2014090744

PATIENT
  Sex: Female

DRUGS (2)
  1. CELEBREX [Suspect]
     Dosage: 100 MG, UNK
  2. CELEBREX [Suspect]
     Dosage: 200 MG, UNK

REACTIONS (3)
  - Drug intolerance [Unknown]
  - Intentional product misuse [Unknown]
  - Nausea [Unknown]
